FAERS Safety Report 8952637 (Version 1)
Quarter: 2012Q4

REPORT INFORMATION
  Report Type: 
  Country: US (occurrence: US)
  Receive Date: 20121205
  Receipt Date: 20121205
  Transmission Date: 20130627
  Serious: No
  Sender: FDA-Public Use
  Company Number: US-VERTEX PHARMACEUTICALS INC.-2012-025618

PATIENT
  Age: 55 Year
  Sex: Female

DRUGS (6)
  1. INCIVEK [Suspect]
     Indication: HEPATITIS C
     Dosage: 750 mg, tid
     Route: 048
     Dates: start: 20121018
  2. RIBAVIRIN [Suspect]
     Indication: HEPATITIS C
     Dosage: 2 DF, bid
     Route: 048
     Dates: start: 20121018
  3. PEGASYS [Suspect]
     Indication: HEPATITIS C
     Dosage: 135 ?g, qw
     Route: 058
     Dates: start: 20121018
  4. EVISTA [Concomitant]
  5. CALCIUM [Concomitant]
  6. VITAMIN D /00107901/ [Concomitant]

REACTIONS (3)
  - Constipation [Not Recovered/Not Resolved]
  - Anorectal discomfort [Not Recovered/Not Resolved]
  - Haemorrhoidal haemorrhage [Not Recovered/Not Resolved]
